FAERS Safety Report 6702781-0 (Version None)
Quarter: 2010Q2

REPORT INFORMATION
  Report Type: 
  Country: None (occurrence: None)
  Receive Date: 20100429
  Receipt Date: 20100419
  Transmission Date: 20101027
  Serious: Yes (Hospitalization, Other)
  Sender: FDA-Public Use
  Company Number: BR-ELI_LILLY_AND_COMPANY-BR201003006362

PATIENT
  Sex: Female
  Weight: 65 kg

DRUGS (10)
  1. FORTEO [Suspect]
     Indication: OSTEOPOROSIS
     Dosage: UNK, UNKNOWN
     Route: 058
     Dates: start: 20070701
  2. DAFORIN [Concomitant]
     Dosage: UNK, UNKNOWN
     Route: 065
  3. DIOVAN [Concomitant]
     Dosage: UNK, UNKNOWN
     Route: 065
  4. TRENTAL [Concomitant]
     Dosage: UNK, UNKNOWN
     Route: 065
  5. ROHIPNOL [Concomitant]
     Dosage: UNK, UNKNOWN
     Route: 065
  6. RIVOTRIL [Concomitant]
  7. OMEPRAZOLE [Concomitant]
  8. DIOSMIN [Concomitant]
  9. NIMESULIDE [Concomitant]
     Indication: ANTIINFLAMMATORY THERAPY
  10. T4 [Concomitant]
     Indication: HYPOTHYROIDISM

REACTIONS (5)
  - BACK PAIN [None]
  - COCCYGECTOMY [None]
  - DISLOCATION OF VERTEBRA [None]
  - FALL [None]
  - NOSOCOMIAL INFECTION [None]
